FAERS Safety Report 7289117-4 (Version None)
Quarter: 2011Q1

REPORT INFORMATION
  Report Type: 
  Country: None (occurrence: None)
  Receive Date: 20110211
  Receipt Date: 20110128
  Transmission Date: 20110831
  Serious: Yes (Death, Life-Threatening, Hospitalization)
  Sender: FDA-Public Use
  Company Number: FR-NAPPMUNDI-MAG-2011-0001388

PATIENT
  Age: 45 Year
  Sex: Male

DRUGS (3)
  1. OXYCODONE HCL [Suspect]
     Indication: PAIN
     Dosage: 60 MG, TWICE TO THREE TIMES DAILY
     Route: 048
     Dates: start: 20101209, end: 20101228
  2. SOLUPRED                           /00016201/ [Concomitant]
     Indication: PAIN
     Dosage: 60 MG, DAILY
     Route: 048
     Dates: start: 20101223, end: 20101230
  3. OXYCONTIN [Suspect]
     Indication: PAIN
     Dosage: 180 MG, Q12H
     Route: 048
     Dates: start: 20101209, end: 20101228

REACTIONS (4)
  - PNEUMONIA [None]
  - OVERDOSE [None]
  - HYPOXIA [None]
  - COMA [None]
